FAERS Safety Report 6349045-5 (Version None)
Quarter: 2009Q3

REPORT INFORMATION
  Report Type: 
  Country: None (occurrence: None)
  Receive Date: 20090908
  Receipt Date: 20090901
  Transmission Date: 20100115
  Serious: Yes (Death, Hospitalization)
  Sender: FDA-Public Use
  Company Number: 2009AL005743

PATIENT
  Age: 79 Year
  Sex: Male

DRUGS (15)
  1. LOVASTATIN [Suspect]
     Indication: HYPERLIPIDAEMIA
     Dosage: 40 MG; QD; PO
     Route: 048
  2. NIFEDIPINE EXTENDED-RELEASE TABLET           , 60 MG (ASALLC) [Suspect]
     Dosage: 60 MG; QD; PO
     Route: 048
  3. GEMFIBROZIL [Concomitant]
  4. DOCUSATE SODIUM [Concomitant]
  5. FERROUS SULFATE TAB [Concomitant]
  6. FLUTICASONE [Concomitant]
  7. IPRATROPIUM BROMIDE W/SALBUTAMOL [Concomitant]
  8. GLYBURIDE [Concomitant]
  9. NITRGLYCERIN TRANSDERMAL SYSTEM [Concomitant]
  10. PANTROPRAZOLE [Concomitant]
  11. TAMSULOSIN HCL [Concomitant]
  12. WARFARIN [Concomitant]
  13. ACETAMINOPHEN [Concomitant]
  14. HYDROXYZINE [Concomitant]
  15. NITROGLYCERIN [Concomitant]

REACTIONS (15)
  - COAGULOPATHY [None]
  - DELIRIUM [None]
  - DRUG INTERACTION [None]
  - HAEMOPTYSIS [None]
  - HEPATIC FAILURE [None]
  - HYPOALBUMINAEMIA [None]
  - HYPOVOLAEMIA [None]
  - MULTI-ORGAN FAILURE [None]
  - NO THERAPEUTIC RESPONSE [None]
  - PANCYTOPENIA [None]
  - PNEUMONIA STAPHYLOCOCCAL [None]
  - POLYNEUROPATHY [None]
  - RENAL FAILURE ACUTE [None]
  - RESPIRATORY FAILURE [None]
  - SEPSIS [None]
